FAERS Safety Report 5952845-4 (Version None)
Quarter: 2008Q4

REPORT INFORMATION
  Report Type: 
  Country: None (occurrence: None)
  Receive Date: 20081114
  Receipt Date: 20081014
  Transmission Date: 20090506
  Serious: No
  Sender: FDA-Public Use
  Company Number: US-BAYER-200835745NA

PATIENT
  Age: 64 Year
  Sex: Male

DRUGS (10)
  1. LEVITRA [Suspect]
     Indication: ERECTILE DYSFUNCTION
     Dosage: TOTAL DAILY DOSE: 10 MG  UNIT DOSE: 10 MG
     Route: 048
     Dates: start: 20081006, end: 20081013
  2. SIMVASTATIN [Concomitant]
  3. ATENOLOL [Concomitant]
  4. XANAX [Concomitant]
  5. OMEPRAZOLE [Concomitant]
  6. NIASPAN [Concomitant]
  7. POTASSIUM CHLORIDE [Concomitant]
  8. SERTRALINE [Concomitant]
  9. ASPIRIN [Concomitant]
  10. M.V.I. [Concomitant]

REACTIONS (1)
  - FLUSHING [None]
